FAERS Safety Report 10205320 (Version 1)
Quarter: 2014Q2

REPORT INFORMATION
  Report Type: Spontaneous
  Country: GB (occurrence: GB)
  Receive Date: 20140529
  Receipt Date: 20140529
  Transmission Date: 20141212
  Serious: Yes (Hospitalization)
  Sender: FDA-Public Use
  Company Number: GB-ACTAVIS-2014-11097

PATIENT
  Age: 83 Year
  Sex: Male

DRUGS (10)
  1. TRAMADOL (UNKNOWN) [Suspect]
     Indication: ANALGESIC THERAPY
     Dosage: 50 MG, QID. WHEN REQUIRED
     Route: 048
     Dates: end: 20140221
  2. NEFOPAM [Suspect]
     Indication: ANALGESIC THERAPY
     Dosage: 30 MG, BID
     Route: 048
     Dates: end: 20140221
  3. BETAMETHASONE VALERATE [Concomitant]
     Indication: ECZEMA
     Dosage: UNK
     Route: 065
  4. CALCICHEW D3 [Concomitant]
     Indication: HYPOCALCAEMIA
     Dosage: UNK
     Route: 065
  5. CODEINE PHOSPHATE [Concomitant]
     Indication: ANALGESIC THERAPY
     Dosage: UNK
     Route: 065
  6. HYOSCINE BUTYLBROMIDE [Concomitant]
     Indication: IRRITABLE BOWEL SYNDROME
     Dosage: UNK
     Route: 065
  7. LACTULOSE [Concomitant]
     Indication: CONSTIPATION
     Dosage: UNK
     Route: 065
  8. METOCLOPRAMIDE [Concomitant]
     Indication: NAUSEA
     Dosage: UNK
     Route: 065
  9. PARACETAMOL [Concomitant]
     Indication: ANALGESIC THERAPY
     Dosage: UNK
     Route: 065
  10. PROPRANOLOL [Concomitant]
     Indication: TACHYCARDIA
     Dosage: UNK
     Route: 065

REACTIONS (2)
  - Confusional state [Recovering/Resolving]
  - Diarrhoea [Recovered/Resolved]
